FAERS Safety Report 13400080 (Version 1)
Quarter: 2017Q2

REPORT INFORMATION
  Report Type: Spontaneous
  Country: US (occurrence: US)
  Receive Date: 20170404
  Receipt Date: 20170404
  Transmission Date: 20170830
  Serious: Yes (Hospitalization)
  Sender: FDA-Public Use
  Company Number: None

PATIENT
  Age: 70 Year
  Sex: Female
  Weight: 70.37 kg

DRUGS (17)
  1. TRAMADOL HCL [Concomitant]
     Active Substance: TRAMADOL HYDROCHLORIDE
  2. COENZYME Q10 [Concomitant]
     Active Substance: UBIDECARENONE
  3. LANTUS SOLOSTAR [Suspect]
     Active Substance: INSULIN GLARGINE
     Indication: GLYCOSYLATED HAEMOGLOBIN INCREASED
     Dosage: 10 UNITS 10 UNITS AT BEDTIME AT BEDTIME INJECTION?
  4. LOSARTAN. [Concomitant]
     Active Substance: LOSARTAN
  5. SUCRALFATE. [Concomitant]
     Active Substance: SUCRALFATE
  6. GLIMEPIRIDE. [Concomitant]
     Active Substance: GLIMEPIRIDE
  7. LORAZEPAM. [Concomitant]
     Active Substance: LORAZEPAM
  8. CHLORTABS [Concomitant]
     Active Substance: CHLORPHENIRAMINE MALEATE
  9. GARLIC. [Concomitant]
     Active Substance: GARLIC
  10. LANTUS SOLOSTAR [Suspect]
     Active Substance: INSULIN GLARGINE
     Indication: DIABETES MELLITUS
     Dosage: 10 UNITS 10 UNITS AT BEDTIME AT BEDTIME INJECTION?
  11. CYANOCOBALAMIN. [Concomitant]
     Active Substance: CYANOCOBALAMIN
  12. PRAVASTATIN. [Concomitant]
     Active Substance: PRAVASTATIN
  13. TRIAMTERENE AND HYDROCHLOROTHIAZIDE [Concomitant]
     Active Substance: HYDROCHLOROTHIAZIDE\TRIAMTERENE
  14. MECLIZINE [Concomitant]
     Active Substance: MECLIZINE HYDROCHLORIDE
  15. NASALCROM SPRAY [Concomitant]
  16. VITAMIN D3 [Concomitant]
     Active Substance: CHOLECALCIFEROL
  17. POTASSIUM [Concomitant]
     Active Substance: POTASSIUM

REACTIONS (8)
  - Pharyngeal oedema [None]
  - Blood pressure decreased [None]
  - Sputum abnormal [None]
  - Swollen tongue [None]
  - Dyspnoea [None]
  - Blood glucose decreased [None]
  - Wheezing [None]
  - Headache [None]

NARRATIVE: CASE EVENT DATE: 20170306
